FAERS Safety Report 5740247-5 (Version None)
Quarter: 2008Q2

REPORT INFORMATION
  Report Type: 
  Country: None (occurrence: None)
  Receive Date: 20080516
  Receipt Date: 20080509
  Transmission Date: 20081010
  Serious: Yes (Other)
  Sender: FDA-Public Use
  Company Number: US-JNJFOC-20080502296

PATIENT
  Sex: Female

DRUGS (1)
  1. LEVAQUIN [Suspect]
     Indication: SKIN INFECTION
     Route: 048

REACTIONS (4)
  - BONE NEOPLASM MALIGNANT [None]
  - MUSCLE RUPTURE [None]
  - MYALGIA [None]
  - TENDON RUPTURE [None]
